FAERS Safety Report 16349150 (Version 2)
Quarter: 2019Q2

REPORT INFORMATION
  Report Type: Report from Study
  Country: MX (occurrence: MX)
  Receive Date: 20190523
  Receipt Date: 20190617
  Transmission Date: 20190711
  Serious: Yes (Hospitalization, Other)
  Sender: FDA-Public Use
  Company Number: MX-INCYTE CORPORATION-2019IN004884

PATIENT

DRUGS (1)
  1. JAKAVI [Suspect]
     Active Substance: RUXOLITINIB
     Indication: MYELOFIBROSIS
     Dosage: 20 MG, QD
     Route: 048

REACTIONS (10)
  - Abscess [Unknown]
  - Hyperhidrosis [Unknown]
  - Infection [Unknown]
  - Fall [Unknown]
  - Malaise [Unknown]
  - Inappropriate schedule of product administration [Unknown]
  - Weight decreased [Unknown]
  - Neutropenia [Unknown]
  - Haematoma [Unknown]
  - Fatigue [Unknown]
